FAERS Safety Report 8487690-1 (Version None)
Quarter: 2012Q2

REPORT INFORMATION
  Report Type: 
  Country: None (occurrence: None)
  Receive Date: 20120402
  Receipt Date: 20090603
  Transmission Date: 20120825
  Serious: Yes (Other)
  Sender: FDA-Public Use
  Company Number: PHEH2009US05703

PATIENT
  Sex: Female

DRUGS (1)
  1. EXFORGE [Suspect]
     Indication: HYPERTENSION
     Dosage: 160/5 MG, QD
     Dates: start: 20080901

REACTIONS (4)
  - PLATELET COUNT DECREASED [None]
  - BLOOD COUNT ABNORMAL [None]
  - STRESS [None]
  - DEPRESSION [None]
